FAERS Safety Report 6762994-9 (Version None)
Quarter: 2010Q2

REPORT INFORMATION
  Report Type: 
  Country: None (occurrence: None)
  Receive Date: 20100608
  Receipt Date: 20100608
  Transmission Date: 20101027
  Serious: No
  Sender: FDA-Public Use
  Company Number: None

PATIENT
  Sex: Male

DRUGS (2)
  1. TRILEPTAL [Suspect]
     Indication: EPILEPSY
     Dosage: 4 MLS AM 5 MLS PM
  2. TRILEPTAL [Suspect]
     Indication: HYDROCEPHALUS
     Dosage: 4 MLS AM 5 MLS PM

REACTIONS (1)
  - NO ADVERSE EVENT [None]
